FAERS Safety Report 8032663-6 (Version None)
Quarter: 2012Q1

REPORT INFORMATION
  Report Type: 
  Country: None (occurrence: None)
  Receive Date: 20120110
  Receipt Date: 20111021
  Transmission Date: 20120608
  Serious: No
  Sender: FDA-Public Use
  Company Number: US-COVIDIEN/TYCO HEALTHCARE/MALLINCKRODT-T201102393

PATIENT
  Sex: Male

DRUGS (7)
  1. TRILIPIX [Concomitant]
     Dosage: 135 MG, QD
  2. GLUCOPHAGE [Concomitant]
     Dosage: 500 MG, 2 TABLETS QD
  3. VALTURNA [Concomitant]
     Dosage: 150-160 MG QD
  4. PROVENTIL HFA                      /00139501/ [Concomitant]
     Dosage: 109 MCG/INHALATION, 2 PUFFS Q 4 HR, PRN
  5. OPTIRAY 160 [Suspect]
     Indication: HAEMATURIA
     Dosage: 50 ML, SINGLE
     Route: 042
     Dates: start: 20111021, end: 20111021
  6. FLOMAX [Concomitant]
     Dosage: 0.4 MG, QD
  7. FLOVENT HFA [Concomitant]
     Dosage: 44 MCG/INHALATION, 2PUFFS, BID

REACTIONS (2)
  - DYSPHONIA [None]
  - URTICARIA [None]
